FAERS Safety Report 15967105 (Version 2)
Quarter: 2019Q1

REPORT INFORMATION
  Report Type: Spontaneous
  Country: NL (occurrence: NL)
  Receive Date: 20190215
  Receipt Date: 20190220
  Transmission Date: 20190418
  Serious: Yes (Other)
  Sender: FDA-Public Use
  Company Number: NL-SA-2019SA042508

PATIENT
  Sex: Male

DRUGS (4)
  1. ASCAL [CARBASALATE CALCIUM] [Concomitant]
  2. VITAMIN B3 [Concomitant]
     Active Substance: NIACIN
  3. DUPIXENT [Suspect]
     Active Substance: DUPILUMAB
     Dosage: 300 MG, QOW
     Route: 058
     Dates: start: 20181110
  4. OMEPRAZOLE. [Concomitant]
     Active Substance: OMEPRAZOLE

REACTIONS (4)
  - Urinary tract infection [Unknown]
  - Urosepsis [Unknown]
  - Atrial fibrillation [Unknown]
  - Infection [Unknown]

NARRATIVE: CASE EVENT DATE: 20190111
